FAERS Safety Report 17565594 (Version 3)
Quarter: 2022Q2

REPORT INFORMATION
  Report Type: Spontaneous
  Country: US (occurrence: US)
  Receive Date: 20200320
  Receipt Date: 20220517
  Transmission Date: 20220721
  Serious: No
  Sender: FDA-Public Use
  Company Number: US-PFIZER INC-2020120376

PATIENT
  Age: 70 Year
  Sex: Female
  Weight: 68.49 kg

DRUGS (1)
  1. PROCARDIA XL [Suspect]
     Active Substance: NIFEDIPINE
     Indication: Hypertension
     Dosage: 90 MG, 1X/DAY
     Route: 048

REACTIONS (8)
  - Pruritus [Unknown]
  - Throat irritation [Unknown]
  - Erythema [Unknown]
  - Dry throat [Unknown]
  - Rash [Unknown]
  - Eye pruritus [Unknown]
  - Suspected counterfeit product [Unknown]
  - Product colour issue [Unknown]

NARRATIVE: CASE EVENT DATE: 20200317
